FAERS Safety Report 6571775-0 (Version None)
Quarter: 2010Q1

REPORT INFORMATION
  Report Type: 
  Country: None (occurrence: None)
  Receive Date: 20100205
  Receipt Date: 20100202
  Transmission Date: 20100710
  Serious: Yes (Death, Hospitalization)
  Sender: FDA-Public Use
  Company Number: CN-ASTRAZENECA-2010SE04599

PATIENT

DRUGS (1)
  1. IRESSA [Suspect]
     Dosage: 500 OR 1000 MG AT ONCE
     Route: 048

REACTIONS (2)
  - CHRONIC RESPIRATORY DISEASE [None]
  - OVERDOSE [None]
